FAERS Safety Report 13292655 (Version 2)
Quarter: 2017Q2

REPORT INFORMATION
  Report Type: Spontaneous
  Country: US (occurrence: US)
  Receive Date: 20170303
  Receipt Date: 20170616
  Transmission Date: 20170830
  Serious: No
  Sender: FDA-Public Use
  Company Number: US-AMGEN-USASP2017029291

PATIENT
  Age: 50 Year
  Sex: Female

DRUGS (3)
  1. ENBREL [Suspect]
     Active Substance: ETANERCEPT
     Indication: RHEUMATOID ARTHRITIS
     Dosage: 50 MG, QWK
     Route: 058
     Dates: start: 201702
  2. PREDNISONE. [Suspect]
     Active Substance: PREDNISONE
     Indication: PRODUCT USED FOR UNKNOWN INDICATION
     Dosage: UNK
     Route: 065
     Dates: start: 201702
  3. SWISS KRISS [Concomitant]
     Dosage: UNK

REACTIONS (8)
  - Dry mouth [Unknown]
  - Syncope [Unknown]
  - Rash macular [Unknown]
  - Palpitations [Unknown]
  - Anxiety [Unknown]
  - Rash [Recovered/Resolved]
  - Pruritus generalised [Unknown]
  - Mood swings [Unknown]

NARRATIVE: CASE EVENT DATE: 2017
